FAERS Safety Report 7724309-9 (Version None)
Quarter: 2011Q3

REPORT INFORMATION
  Report Type: 
  Country: None (occurrence: None)
  Receive Date: 20110901
  Receipt Date: 20110819
  Transmission Date: 20111222
  Serious: Yes (Other)
  Sender: FDA-Public Use
  Company Number: FR-UCBSA-039690

PATIENT
  Age: 26 Year
  Sex: Female
  Weight: 60 kg

DRUGS (4)
  1. FELBAMATE [Suspect]
     Indication: EPILEPSY
     Dosage: PREVIOUSLY ON 600 MG 2 TABLETS DAILY : 2400MG, SINGLE INTAKE
     Route: 048
     Dates: start: 20110725, end: 20110725
  2. LAMICTAL [Suspect]
     Indication: EPILEPSY
     Dosage: PREVIOUSLY ON 200 MG ONCE DAILY :400MG, SINGLE INTAKE
     Route: 048
     Dates: start: 20110725, end: 20110725
  3. DEPAKENE [Suspect]
     Indication: EPILEPSY
     Dosage: PREVIOUSLY ON 200 MG ONCE DAILY  ; 400MG, SINGLE INTAKE
     Route: 048
     Dates: start: 20110725, end: 20110725
  4. KEPPRA [Suspect]
     Indication: EPILEPSY
     Dosage: PREVIOUSLY ON 500 MG DAILY : 1000MG SINGLE INTAKE
     Route: 048
     Dates: start: 20110725, end: 20110725

REACTIONS (4)
  - DIZZINESS [None]
  - INCORRECT DRUG ADMINISTRATION RATE [None]
  - SPEECH DISORDER [None]
  - MALAISE [None]
